FAERS Safety Report 9103422 (Version 1)
Quarter: 2013Q1

REPORT INFORMATION
  Report Type: Spontaneous
  Country: US (occurrence: US)
  Receive Date: 20130219
  Receipt Date: 20130219
  Transmission Date: 20140127
  Serious: Yes (Other)
  Sender: FDA-Public Use
  Company Number: US-PFIZER INC-2013061644

PATIENT
  Age: 80 Year
  Sex: Female
  Weight: 44.44 kg

DRUGS (1)
  1. FLECTOR [Suspect]
     Dosage: UNK
     Dates: start: 201302

REACTIONS (3)
  - Neoplasm malignant [Unknown]
  - Mass [Unknown]
  - Confusional state [Unknown]
